FAERS Safety Report 14834588 (Version 3)
Quarter: 2018Q3

REPORT INFORMATION
  Report Type: Spontaneous
  Country: IT (occurrence: IT)
  Receive Date: 20180501
  Receipt Date: 20180831
  Transmission Date: 20181010
  Serious: Yes (Hospitalization)
  Sender: FDA-Public Use
  Company Number: IT-PFIZER INC-2018171667

PATIENT
  Age: 64 Year
  Sex: Male

DRUGS (2)
  1. LORAZEPAM. [Suspect]
     Active Substance: LORAZEPAM
     Indication: INSOMNIA
     Dosage: 20 MG, 1X/DAY
     Route: 048
  2. TRIAZOLAM. [Suspect]
     Active Substance: TRIAZOLAM
     Dosage: 2 MG, 1X/DAY
     Route: 048

REACTIONS (2)
  - Drug abuse [Unknown]
  - Drug dependence [Unknown]

NARRATIVE: CASE EVENT DATE: 20180319
